FAERS Safety Report 13971082 (Version 2)
Quarter: 2018Q3

REPORT INFORMATION
  Report Type: Spontaneous
  Country: US (occurrence: US)
  Receive Date: 20170914
  Receipt Date: 20180913
  Transmission Date: 20181010
  Serious: No
  Sender: FDA-Public Use
  Company Number: US-ASTELLAS-2017US001925

PATIENT
  Age: 62 Year
  Sex: Male

DRUGS (4)
  1. MORPHINE [Suspect]
     Active Substance: MORPHINE
     Indication: PRODUCT USED FOR UNKNOWN INDICATION
     Dosage: UNK, UNKNOWN FREQ.
     Route: 065
  2. XTANDI [Suspect]
     Active Substance: ENZALUTAMIDE
     Route: 048
  3. XTANDI [Suspect]
     Active Substance: ENZALUTAMIDE
     Indication: HORMONE-REFRACTORY PROSTATE CANCER
     Route: 048
     Dates: start: 20160908
  4. XTANDI [Suspect]
     Active Substance: ENZALUTAMIDE
     Route: 048

REACTIONS (4)
  - Prostatic specific antigen increased [Unknown]
  - Somnolence [Unknown]
  - Malaise [Unknown]
  - Nausea [Not Recovered/Not Resolved]

NARRATIVE: CASE EVENT DATE: 20160916
